FAERS Safety Report 5896482-9 (Version None)
Quarter: 2008Q3

REPORT INFORMATION
  Report Type: 
  Country: None (occurrence: None)
  Receive Date: 20080924
  Receipt Date: 20070627
  Transmission Date: 20090109
  Serious: No
  Sender: FDA-Public Use
  Company Number: US-BAYER-200711989BWH

PATIENT
  Age: 64 Year
  Sex: Male

DRUGS (2)
  1. AVELOX [Suspect]
     Indication: CELLULITIS
     Route: 048
  2. ALCOHOL [Concomitant]

REACTIONS (1)
  - CELLULITIS [None]
